FAERS Safety Report 7455373-2 (Version None)
Quarter: 2011Q2

REPORT INFORMATION
  Report Type: 
  Country: None (occurrence: None)
  Receive Date: 20110503
  Receipt Date: 20110316
  Transmission Date: 20111010
  Serious: No
  Sender: FDA-Public Use
  Company Number: US-TYCO HEALTHCARE/MALLINCKRODT-T201100640

PATIENT
  Sex: Male

DRUGS (15)
  1. PROZAC                             /00724401/ [Concomitant]
  2. FENTANYL [Concomitant]
     Dosage: 1-2 Q72 HRS
     Dates: start: 20060101
  3. NORVASC [Concomitant]
  4. FENTANYL CITRATE [Suspect]
     Indication: PAIN
     Dosage: 1200 ?G, QID
     Dates: start: 20110311, end: 20110313
  5. LORAZEPAM [Concomitant]
  6. AFRIN NASAL DECONGESTANT [Concomitant]
  7. ACTIQ [Concomitant]
     Dosage: 1, QID
     Dates: end: 20110311
  8. PROMETHAZINE HYDROCHLORIDE [Concomitant]
  9. LINISOPRIL [Concomitant]
  10. FLEETS ENEMA [Concomitant]
     Dosage: UNK, PRN
  11. PROTONIX [Concomitant]
  12. WELLBUTRIN [Concomitant]
  13. SENOKOT [Concomitant]
  14. OXYCODONE [Concomitant]
     Dosage: 15 MG, PRN
  15. TEMAZEPAM [Concomitant]
     Dosage: UNK, QHS

REACTIONS (3)
  - HOT FLUSH [None]
  - RASH GENERALISED [None]
  - PRURITUS [None]
